FAERS Safety Report 12809638 (Version 1)
Quarter: 2016Q4

REPORT INFORMATION
  Report Type: Report from Study
  Country: IN (occurrence: IN)
  Receive Date: 20161005
  Receipt Date: 20161005
  Transmission Date: 20170207
  Serious: Yes (Hospitalization, Other)
  Sender: FDA-Public Use
  Company Number: IN-ROCHE-1835834

PATIENT

DRUGS (1)
  1. RITUXIMAB [Suspect]
     Active Substance: RITUXIMAB
     Indication: NON-HODGKIN^S LYMPHOMA
     Dosage: COLD RITUXIMAB: 250 MG/M2 ON DAY 1 AND 8 FOLLOWED BY Y-90 RITUXIMAB 14.8 MBQ/KG (0.4 MCI/KG) ON THE
     Route: 042

REACTIONS (5)
  - Anaemia [Unknown]
  - Febrile neutropenia [Unknown]
  - Neutropenia [Unknown]
  - Thrombocytopenia [Unknown]
  - Hyponatraemia [Unknown]
